FAERS Safety Report 14605080 (Version 1)
Quarter: 2018Q1

REPORT INFORMATION
  Report Type: Spontaneous
  Country: US (occurrence: US)
  Receive Date: 20180306
  Receipt Date: 20180306
  Transmission Date: 20180509
  Serious: Yes (Other)
  Sender: FDA-Public Use
  Company Number: None

PATIENT
  Age: 42 Year
  Sex: Male
  Weight: 64.8 kg

DRUGS (1)
  1. BUPRENORPHINE/NALOXONE [Suspect]
     Active Substance: BUPRENORPHINE\NALOXONE
     Indication: DRUG DEPENDENCE
     Dosage: DOSE - 2 TOTAL
     Route: 002
     Dates: start: 20171210, end: 20180306

REACTIONS (3)
  - Drug dependence [None]
  - Abdominal discomfort [None]
  - Therapy change [None]

NARRATIVE: CASE EVENT DATE: 20171210
